FAERS Safety Report 7463483-9 (Version None)
Quarter: 2011Q2

REPORT INFORMATION
  Report Type: 
  Country: None (occurrence: None)
  Receive Date: 20110506
  Receipt Date: 20110425
  Transmission Date: 20111010
  Serious: Yes (Death, Life-Threatening, Hospitalization, Disabling)
  Sender: FDA-Public Use
  Company Number: PHHY2009JP18567

PATIENT
  Sex: Female

DRUGS (12)
  1. TASIGNA [Suspect]
     Indication: CHRONIC MYELOID LEUKAEMIA
     Dosage: 400 MG,DAILY
     Route: 048
     Dates: start: 20090429, end: 20090721
  2. TAKEPRON [Concomitant]
     Dosage: 15 MG, UNK
     Route: 048
     Dates: start: 20090929
  3. HYDREA [Concomitant]
     Indication: CHRONIC MYELOID LEUKAEMIA
     Dosage: 500 MG, UNK
     Route: 048
     Dates: start: 20091027
  4. ALLOPURINOL [Concomitant]
     Dosage: 100 MG, UNK
     Route: 048
     Dates: start: 20101118
  5. DIOVAN [Suspect]
     Dosage: 80 MG, UNK
     Route: 048
     Dates: end: 20101118
  6. TASIGNA [Suspect]
     Dosage: 800 MG, DAILY
     Route: 048
     Dates: start: 20090722, end: 20101115
  7. HYDREA [Concomitant]
     Dosage: 1000 MG, UNK
     Route: 048
  8. MARZULENE S [Concomitant]
     Dosage: 1 G, UNK
     Route: 048
     Dates: start: 20101118
  9. LASIX [Concomitant]
     Dosage: 20 MG, UNK
     Route: 048
     Dates: start: 20101118
  10. EVAMYL [Concomitant]
     Dosage: 1 MG, UNK
     Route: 048
     Dates: start: 20101115
  11. NORVASC [Concomitant]
     Dosage: 5 MG, UNK
     Route: 048
     Dates: start: 20100511, end: 20101118
  12. MAGLAX [Concomitant]
     Dosage: 990 MG, UNK
     Route: 048
     Dates: start: 20100323

REACTIONS (3)
  - MYALGIA [None]
  - RENAL IMPAIRMENT [None]
  - CHRONIC MYELOID LEUKAEMIA TRANSFORMATION [None]
